FAERS Safety Report 9411263 (Version 3)
Quarter: 2013Q3

REPORT INFORMATION
  Report Type: Spontaneous
  Country: AU (occurrence: AU)
  Receive Date: 20130722
  Receipt Date: 20130807
  Transmission Date: 20140515
  Serious: Yes (Hospitalization, Other)
  Sender: FDA-Public Use
  Company Number: AU-AMGEN-AUSSP2013049962

PATIENT
  Age: 87 Year
  Sex: Female

DRUGS (13)
  1. PROLIA [Suspect]
     Indication: OSTEOPOROSIS POSTMENOPAUSAL
     Dosage: 60 MG, Q6MO
     Route: 058
  2. FLUVAX [Suspect]
     Indication: PRODUCT USED FOR UNKNOWN INDICATION
     Dosage: UNK
     Route: 065
     Dates: start: 20130520
  3. CARVEDILOL [Concomitant]
     Dosage: 3.125 MG, UNK
     Route: 048
  4. GABAPENTIN [Concomitant]
     Dosage: 100 MG, MORNING AND NIGHT
  5. PROGOUT [Concomitant]
  6. PANADOL OSTEO [Concomitant]
  7. ASPIRIN [Concomitant]
     Dosage: 100 MG, MORNING
     Route: 048
  8. PARACETAMOL [Concomitant]
  9. CHOLECALCIFEROL [Concomitant]
     Dosage: 1000 UNIT, MORNING
     Route: 048
  10. AVAPRO [Concomitant]
  11. FUROSEMIDE [Concomitant]
     Indication: HYPOTENSION
  12. FUROSEMIDE [Concomitant]
     Indication: ELECTROLYTE IMBALANCE
  13. NITRO                              /00003201/ [Concomitant]
     Indication: HYPOTENSION

REACTIONS (22)
  - Haemodynamic instability [Unknown]
  - Malaise [Unknown]
  - Sepsis [Unknown]
  - Renal failure chronic [Recovered/Resolved]
  - Hypophagia [Unknown]
  - Cardiac failure congestive [Unknown]
  - Arrhythmia supraventricular [Unknown]
  - Mobility decreased [Unknown]
  - Osteoarthritis [Unknown]
  - Neuralgia [Unknown]
  - Hypotension [Unknown]
  - Dehydration [Unknown]
  - Acute myocardial infarction [Unknown]
  - Hypercoagulation [Unknown]
  - Pyrexia [Unknown]
  - Pleural effusion [Unknown]
  - Renal failure acute [Recovered/Resolved]
  - Hyperkalaemia [Unknown]
  - H1N1 influenza [Recovered/Resolved]
  - Respiratory failure [Recovered/Resolved]
  - Pneumonia [Recovered/Resolved]
  - Dizziness [Unknown]
